FAERS Safety Report 14239363 (Version 1)
Quarter: 2017Q4

REPORT INFORMATION
  Report Type: Spontaneous
  Country: US (occurrence: US)
  Receive Date: 20171127
  Receipt Date: 20171127
  Transmission Date: 20180321
  Serious: Yes (Disabling)
  Sender: FDA-Public Use
  Company Number: None

PATIENT
  Age: 25 Year
  Sex: Female
  Weight: 54 kg

DRUGS (1)
  1. PREDNISONE. [Suspect]
     Active Substance: PREDNISONE
     Indication: DRUG HYPERSENSITIVITY
     Route: 048
     Dates: start: 20161018, end: 20161130

REACTIONS (8)
  - Fatigue [None]
  - Facial neuralgia [None]
  - Anxiety [None]
  - Hallucination [None]
  - Weight decreased [None]
  - Myalgia [None]
  - Neuralgia [None]
  - Impaired work ability [None]

NARRATIVE: CASE EVENT DATE: 20161102
